FAERS Safety Report 5141184-X (Version None)
Quarter: 2006Q4

REPORT INFORMATION
  Report Type: 
  Country: None (occurrence: None)
  Receive Date: 20061101
  Receipt Date: 20061023
  Transmission Date: 20070319
  Serious: Yes (Hospitalization)
  Sender: FDA-Public Use
  Company Number: PHEH2006US13356

PATIENT
  Age: 48 Year
  Sex: Female

DRUGS (4)
  1. ZELNORM [Suspect]
  2. CELEBREX [Concomitant]
  3. HORMONES [Concomitant]
  4. ANALGESICS [Concomitant]

REACTIONS (6)
  - CIRCULATORY COLLAPSE [None]
  - DIARRHOEA [None]
  - HAEMORRHAGE [None]
  - PAIN [None]
  - RESUSCITATION [None]
  - SHOCK [None]
